FAERS Safety Report 17413241 (Version 1)
Quarter: 2020Q1

REPORT INFORMATION
  Report Type: Report from Study
  Country: US (occurrence: US)
  Receive Date: 20200213
  Receipt Date: 20200213
  Transmission Date: 20200409
  Serious: No
  Sender: FDA-Public Use
  Company Number: NVSC2020US037988

PATIENT
  Sex: Male

DRUGS (1)
  1. GLATOPA [Suspect]
     Active Substance: GLATIRAMER ACETATE
     Indication: PRODUCT USED FOR UNKNOWN INDICATION
     Dosage: 40 MG, Q3W
     Route: 058

REACTIONS (6)
  - Injection site haemorrhage [Unknown]
  - Dysgeusia [Unknown]
  - Injection site reaction [Unknown]
  - Flushing [Unknown]
  - Injection site mass [Unknown]
  - Chest discomfort [Unknown]
